FAERS Safety Report 25755778 (Version 1)
Quarter: 2025Q3

REPORT INFORMATION
  Report Type: Spontaneous
  Country: US (occurrence: US)
  Receive Date: 20250903
  Receipt Date: 20250903
  Transmission Date: 20251020
  Serious: No
  Sender: ROCHE
  Company Number: US-ROCHE-10000375849

PATIENT
  Age: 40 Year
  Sex: Female

DRUGS (1)
  1. OCREVUS ZUNOVO [Suspect]
     Active Substance: HYALURONIDASE-OCSQ\OCRELIZUMAB
     Indication: Relapsing multiple sclerosis
     Route: 058
     Dates: start: 20250103

REACTIONS (3)
  - Fatigue [Not Recovered/Not Resolved]
  - Mental fatigue [Not Recovered/Not Resolved]
  - Epinephrine decreased [Not Recovered/Not Resolved]

NARRATIVE: CASE EVENT DATE: 20250825
